FAERS Safety Report 16277864 (Version 1)
Quarter: 2019Q2

REPORT INFORMATION
  Report Type: Spontaneous
  Country: GB (occurrence: GB)
  Receive Date: 20190506
  Receipt Date: 20190506
  Transmission Date: 20190711
  Serious: Yes (Other)
  Sender: FDA-Public Use
  Company Number: GB-009507513-1904GBR012157

PATIENT
  Age: 35 Year
  Sex: Female
  Weight: 95 kg

DRUGS (1)
  1. NEXPLANON [Suspect]
     Active Substance: ETONOGESTREL
     Indication: CONTRACEPTION
     Dosage: UNK
     Dates: start: 20180211, end: 20180418

REACTIONS (2)
  - Dyspareunia [Recovered/Resolved]
  - Genital burning sensation [Recovered/Resolved]
